FAERS Safety Report 23885421 (Version 1)
Quarter: 2024Q2

REPORT INFORMATION
  Report Type: Spontaneous
  Country: DE (occurrence: DE)
  Receive Date: 20240522
  Receipt Date: 20240522
  Transmission Date: 20240715
  Serious: Yes (Other)
  Sender: FDA-Public Use
  Company Number: None

PATIENT
  Age: 35 Year
  Sex: Female
  Weight: 80 kg

DRUGS (1)
  1. SULFASALAZINE [Suspect]
     Active Substance: SULFASALAZINE
     Indication: Colitis ulcerative
     Dosage: 4000 MG
     Route: 048
     Dates: start: 20240324, end: 20240408

REACTIONS (9)
  - Carditis [Recovered/Resolved]
  - Blood iron decreased [Recovered/Resolved]
  - Pyrexia [Recovered/Resolved]
  - Mitral valve incompetence [Recovered/Resolved]
  - Troponin increased [Recovered/Resolved]
  - Blood test abnormal [Recovered/Resolved]
  - Heart rate increased [Recovered/Resolved]
  - Chest discomfort [Recovered/Resolved]
  - Dyspnoea [Recovered/Resolved]

NARRATIVE: CASE EVENT DATE: 20240402
